FAERS Safety Report 7408051-X (Version None)
Quarter: 2011Q2

REPORT INFORMATION
  Report Type: 
  Country: None (occurrence: None)
  Receive Date: 20110401
  Receipt Date: 20110324
  Transmission Date: 20111010
  Serious: Yes (Hospitalization, Disabling, Other)
  Sender: FDA-Public Use
  Company Number: 2010SP042534

PATIENT
  Age: 37 Year
  Sex: Female
  Weight: 58.9676 kg

DRUGS (5)
  1. MULTI-VITAMINS [Concomitant]
  2. NUVARING [Suspect]
     Indication: CONTRACEPTION
     Dates: start: 20060601, end: 20080802
  3. NASONEX [Concomitant]
  4. SINGULAIR [Concomitant]
  5. ALBUTEROL [Concomitant]

REACTIONS (23)
  - MIGRAINE [None]
  - INTRACRANIAL VENOUS SINUS THROMBOSIS [None]
  - MUSCULOSKELETAL STIFFNESS [None]
  - MUSCLE TIGHTNESS [None]
  - OCCIPITAL NEURALGIA [None]
  - CEREBRAL INFARCTION [None]
  - HYPERTENSION [None]
  - DEHYDRATION [None]
  - SEASONAL ALLERGY [None]
  - CEREBRAL HAEMORRHAGE [None]
  - LYME DISEASE [None]
  - JUGULAR VEIN THROMBOSIS [None]
  - HYPERCOAGULATION [None]
  - ASTHMA [None]
  - ARTHROPOD BITE [None]
  - CERVICOBRACHIAL SYNDROME [None]
  - TRANSVERSE SINUS THROMBOSIS [None]
  - HYPOVOLAEMIA [None]
  - DEEP VEIN THROMBOSIS [None]
  - COGNITIVE DISORDER [None]
  - ANXIETY [None]
  - DEPRESSION [None]
  - NECK PAIN [None]
